FAERS Safety Report 5615933-8 (Version None)
Quarter: 2008Q1

REPORT INFORMATION
  Report Type: 
  Country: None (occurrence: None)
  Receive Date: 20080206
  Receipt Date: 20080204
  Transmission Date: 20080703
  Serious: Yes (Death, Hospitalization)
  Sender: FDA-Public Use
  Company Number: PHEH2008US01321

PATIENT
  Age: 51 Year
  Sex: Male

DRUGS (3)
  1. GLEEVEC [Suspect]
     Indication: BRAIN NEOPLASM MALIGNANT
     Dosage: 400 MG, QD
     Route: 048
     Dates: start: 20071106, end: 20071201
  2. HYDROXYUREA [Concomitant]
     Indication: NEOPLASM MALIGNANT
     Dosage: 500 MG, BID
     Route: 048
     Dates: start: 20071101, end: 20071201
  3. DECADRON /CAN/ [Concomitant]
     Indication: BRAIN OEDEMA
     Dosage: 4 MG, BID
     Route: 048
     Dates: start: 20070701, end: 20071201

REACTIONS (3)
  - BRAIN NEOPLASM [None]
  - BRAIN OEDEMA [None]
  - DISEASE PROGRESSION [None]
